FAERS Safety Report 4947505-2 (Version None)
Quarter: 2006Q1

REPORT INFORMATION
  Report Type: 
  Country: None (occurrence: None)
  Receive Date: 20060314
  Receipt Date: 20060227
  Transmission Date: 20060701
  Serious: Yes (Hospitalization)
  Sender: FDA-Public Use
  Company Number: 2006-00457

PATIENT
  Age: 77 Year
  Sex: Male
  Weight: 83.3 kg

DRUGS (2)
  1. VELCADE [Suspect]
     Indication: MULTIPLE MYELOMA
     Dosage: 1.30 MG/M2, INTRAVENOUS
     Route: 042
  2. CENTOLIN (SALBUTAMOL) [Concomitant]

REACTIONS (8)
  - CONSTIPATION [None]
  - DYSURIA [None]
  - LETHARGY [None]
  - NEUTROPHIL COUNT INCREASED [None]
  - ORTHOSTATIC HYPOTENSION [None]
  - PLATELET COUNT DECREASED [None]
  - POLLAKIURIA [None]
  - URINARY TRACT INFECTION [None]
